FAERS Safety Report 8613363-8 (Version None)
Quarter: 2012Q3

REPORT INFORMATION
  Report Type: 
  Country: None (occurrence: None)
  Receive Date: 20120822
  Receipt Date: 20080616
  Transmission Date: 20120928
  Serious: Yes (Death, Hospitalization)
  Sender: FDA-Public Use
  Company Number: PHHY2008ET044025

PATIENT
  Sex: Female

DRUGS (1)
  1. IMATINIB MESYLATE [Suspect]
     Dosage: UNK
     Dates: start: 20051129

REACTIONS (6)
  - HEPATIC NEOPLASM MALIGNANT [None]
  - HEPATIC MASS [None]
  - HEPATIC FAILURE [None]
  - HEPATITIS C VIRUS TEST POSITIVE [None]
  - JAUNDICE [None]
  - ASCITES [None]
